FAERS Safety Report 7297692-9 (Version None)
Quarter: 2011Q1

REPORT INFORMATION
  Report Type: 
  Country: None (occurrence: None)
  Receive Date: 20110216
  Receipt Date: 20110211
  Transmission Date: 20110831
  Serious: Yes (Hospitalization)
  Sender: FDA-Public Use
  Company Number: US-BRISTOL-MYERS SQUIBB COMPANY-15546625

PATIENT
  Age: 56 Year
  Sex: Male

DRUGS (1)
  1. ERBITUX [Suspect]
     Indication: TONGUE NEOPLASM MALIGNANT STAGE UNSPECIFIED

REACTIONS (3)
  - FALL [None]
  - SYNCOPE [None]
  - ASTHENIA [None]
